FAERS Safety Report 23451140 (Version 2)
Quarter: 2024Q1

REPORT INFORMATION
  Report Type: Spontaneous
  Country: CA (occurrence: CA)
  Receive Date: 20240129
  Receipt Date: 20240205
  Transmission Date: 20240409
  Serious: Yes (Other)
  Sender: FDA-Public Use
  Company Number: CA-PFIZER INC-202400025258

PATIENT
  Age: 78 Year
  Sex: Male

DRUGS (5)
  1. METHOTREXATE SODIUM [Suspect]
     Active Substance: METHOTREXATE SODIUM
     Indication: Uveitis
     Dosage: 1 DF, UNKNOWN DOSE AND STATUS  (FAILED)
     Route: 065
  2. METHOTREXATE SODIUM [Suspect]
     Active Substance: METHOTREXATE SODIUM
     Dosage: 25 MG, WEEKLY
     Route: 065
  3. HADLIMA [Concomitant]
     Active Substance: ADALIMUMAB-BWWD
     Dosage: UNK (FAILED)
  4. PREDNISONE [Concomitant]
     Active Substance: PREDNISONE
     Dosage: UNK (FAILED)
  5. RINVOQ [Concomitant]
     Active Substance: UPADACITINIB
     Dosage: UNK (FAILED)

REACTIONS (3)
  - Blindness [Unknown]
  - Drug ineffective [Unknown]
  - Gastrointestinal disorder [Unknown]
